FAERS Safety Report 8209726-5 (Version None)
Quarter: 2012Q1

REPORT INFORMATION
  Report Type: 
  Country: None (occurrence: None)
  Receive Date: 20120314
  Receipt Date: 20120301
  Transmission Date: 20120608
  Serious: Yes (Hospitalization)
  Sender: FDA-Public Use
  Company Number: CN-MYLANLABS-2012S1004886

PATIENT
  Age: 15 Year
  Sex: Male

DRUGS (6)
  1. METHOTREXATE [Suspect]
     Indication: JUVENILE ARTHRITIS
     Dosage: 12.5 MG/WK
     Route: 065
  2. CALCIUM [Concomitant]
     Route: 065
  3. HYDROXYCHLOROQUINE SULFATE [Suspect]
     Indication: JUVENILE ARTHRITIS
     Dosage: 200 MG/DAY
     Route: 065
  4. PREDNISONE TAB [Suspect]
     Dosage: 7.5 MG/DAY
     Route: 065
  5. PREDNISONE TAB [Suspect]
     Indication: JUVENILE ARTHRITIS
     Dosage: 45 MG/DAY
     Route: 065
  6. FOLIC ACID [Concomitant]
     Route: 065

REACTIONS (1)
  - BEZOAR [None]
